FAERS Safety Report 18670322 (Version 1)
Quarter: 2020Q4

REPORT INFORMATION
  Report Type: Spontaneous
  Country: BE (occurrence: BE)
  Receive Date: 20201228
  Receipt Date: 20201228
  Transmission Date: 20210114
  Serious: Yes (Other)
  Sender: FDA-Public Use
  Company Number: BE-PFIZER INC-2020418456

PATIENT
  Age: 56 Year
  Sex: Female

DRUGS (1)
  1. SUTENT [Suspect]
     Active Substance: SUNITINIB MALATE
     Indication: MALIGNANT NEOPLASM OF THYMUS
     Dosage: 50 MG, 4 WEEKS ON - 2 WEEKS OFF (CYCLE OF 6 WEEKS)

REACTIONS (4)
  - Infection [Recovering/Resolving]
  - Bone marrow failure [Unknown]
  - Neutropenia [Unknown]
  - Off label use [Unknown]
